FAERS Safety Report 5277479-9 (Version None)
Quarter: 2007Q1

REPORT INFORMATION
  Report Type: 
  Country: None (occurrence: None)
  Receive Date: 20061213
  Receipt Date: 20060127
  Transmission Date: 20070707
  Serious: No
  Sender: FDA-Public Use
  Company Number: 2005UW17017

PATIENT
  Age: 40 Year
  Sex: Female
  Weight: 100.2449 kg

DRUGS (7)
  1. SEROQUEL [Suspect]
     Indication: PSYCHOTIC DISORDER
     Dosage: 200 MG HS PO
     Route: 048
     Dates: start: 20041117, end: 20051019
  2. ZOLOFT [Concomitant]
  3. BENADRYL  ^PARKE DAVIS^ [Concomitant]
  4. LISINOPRIL [Concomitant]
  5. FUROSEMIDE [Concomitant]
  6. PROTONIX [Concomitant]
  7. ZANTAC [Concomitant]

REACTIONS (1)
  - DIABETES MELLITUS [None]
